FAERS Safety Report 18328913 (Version 4)
Quarter: 2021Q1

REPORT INFORMATION
  Report Type: Spontaneous
  Country: BR (occurrence: BR)
  Receive Date: 20200930
  Receipt Date: 20210123
  Transmission Date: 20210419
  Serious: Yes (Other)
  Sender: FDA-Public Use
  Company Number: NVSC2020BR262734

PATIENT
  Age: 72 Year
  Sex: Female
  Weight: 69 kg

DRUGS (5)
  1. ACLASTA [Suspect]
     Active Substance: ZOLEDRONIC ACID
     Indication: OSTEOARTHRITIS
     Dosage: UNK, Q12MO
     Route: 065
     Dates: start: 20200825
  2. ESCITALOPRAM [Concomitant]
     Active Substance: ESCITALOPRAM OXALATE
     Indication: ANXIETY
     Dosage: 1 DF, QD
     Route: 065
  3. HIDROXICLOROQUINA [Concomitant]
     Active Substance: HYDROXYCHLOROQUINE
     Indication: OSTEOARTHRITIS
     Dosage: 1 DF, QD
     Route: 065
  4. CALCIUM [Concomitant]
     Active Substance: CALCIUM
     Dosage: 1 DF, QD
     Route: 065
  5. CALCIUM [Concomitant]
     Active Substance: CALCIUM
     Indication: PRODUCT USED FOR UNKNOWN INDICATION
     Dosage: 2 DF, QD
     Route: 065

REACTIONS (8)
  - Myalgia [Recovering/Resolving]
  - Headache [Recovering/Resolving]
  - Back pain [Recovering/Resolving]
  - Pain in extremity [Recovering/Resolving]
  - Arthralgia [Recovering/Resolving]
  - Chills [Recovering/Resolving]
  - Pain [Not Recovered/Not Resolved]
  - Polyneuropathy [Recovering/Resolving]

NARRATIVE: CASE EVENT DATE: 20200827
